FAERS Safety Report 21467666 (Version 1)
Quarter: 2022Q4

REPORT INFORMATION
  Report Type: Spontaneous
  Country: US (occurrence: US)
  Receive Date: 20221017
  Receipt Date: 20221017
  Transmission Date: 20230113
  Serious: Yes (Other)
  Sender: FDA-Public Use
  Company Number: US-ALLERGAN-2134270US

PATIENT

DRUGS (1)
  1. LINZESS [Suspect]
     Active Substance: LINACLOTIDE
     Indication: Product used for unknown indication
     Dosage: UNK

REACTIONS (18)
  - Anaphylactic shock [Unknown]
  - Rectal haemorrhage [Unknown]
  - Hypokinesia [Unknown]
  - Delirium [Unknown]
  - Gastric disorder [Unknown]
  - Feeling abnormal [Unknown]
  - Tremor [Unknown]
  - Weight decreased [Unknown]
  - Feeding disorder [Unknown]
  - Taste disorder [Unknown]
  - Insomnia [Unknown]
  - Gastrointestinal hypermotility [Unknown]
  - Anorectal discomfort [Unknown]
  - Dehydration [Unknown]
  - Nausea [Unknown]
  - Vomiting [Unknown]
  - Constipation [Unknown]
  - Diarrhoea [Unknown]
